FAERS Safety Report 4751880-1 (Version None)
Quarter: 2005Q3

REPORT INFORMATION
  Report Type: 
  Country: None (occurrence: None)
  Receive Date: 20050822
  Receipt Date: 20050510
  Transmission Date: 20060218
  Serious: No
  Sender: FDA-Public Use
  Company Number: PHEH2005US05319

PATIENT
  Age: 47 Year
  Sex: Female

DRUGS (4)
  1. ZELNORM [Suspect]
     Indication: IRRITABLE BOWEL SYNDROME
     Dosage: BID, ORAL
     Route: 048
     Dates: start: 20050504
  2. WELLBUTRIN [Concomitant]
  3. PRILOSEC [Concomitant]
  4. HORMONES (HORMONES) [Concomitant]

REACTIONS (2)
  - ERYTHEMA [None]
  - PRURITUS [None]
